FAERS Safety Report 11214328 (Version 2)
Quarter: 2015Q3

REPORT INFORMATION
  Report Type: Report from Study
  Country: BR (occurrence: BR)
  Receive Date: 20150624
  Receipt Date: 20150721
  Transmission Date: 20151125
  Serious: Yes (Other)
  Sender: FDA-Public Use
  Company Number: BR-ROCHE-1518890

PATIENT
  Sex: Female
  Weight: 48 kg

DRUGS (11)
  1. DEFLAZACORT [Concomitant]
     Active Substance: DEFLAZACORT
  2. DIOVAN [Concomitant]
     Active Substance: VALSARTAN
  3. ARAVA [Concomitant]
     Active Substance: LEFLUNOMIDE
  4. METHOTREXATE [Concomitant]
     Active Substance: METHOTREXATE
  5. OMEPRAZOLE. [Concomitant]
     Active Substance: OMEPRAZOLE
  6. LANSOPRAZOLE. [Concomitant]
     Active Substance: LANSOPRAZOLE
  7. EUTHYROX [Concomitant]
     Active Substance: LEVOTHYROXINE SODIUM
  8. CLINFAR [Concomitant]
     Active Substance: SIMVASTATIN
  9. CALCIUM CARBONATE. [Concomitant]
     Active Substance: CALCIUM CARBONATE
  10. MABTHERA [Suspect]
     Active Substance: RITUXIMAB
     Indication: RHEUMATOID ARTHRITIS
     Dosage: SUBSEQUENT DOSES IN 2011, 2012, 2013 AND ON 02/DEC/2014.?LAST INFUSION RECEIVED ON 16/JAN/2015
     Route: 042
     Dates: start: 20100601
  11. ALENDRONATE SODIUM. [Concomitant]
     Active Substance: ALENDRONATE SODIUM
     Dosage: ONCE A MONTH
     Route: 065

REACTIONS (3)
  - Thyroglossal cyst [Unknown]
  - Gastroenteritis [Not Recovered/Not Resolved]
  - Nasopharyngitis [Not Recovered/Not Resolved]

NARRATIVE: CASE EVENT DATE: 2015
